FAERS Safety Report 6533057-2 (Version None)
Quarter: 2010Q1

REPORT INFORMATION
  Report Type: 
  Country: None (occurrence: None)
  Receive Date: 20100106
  Receipt Date: 20091223
  Transmission Date: 20100710
  Serious: Yes (Hospitalization)
  Sender: FDA-Public Use
  Company Number: TPA2009A04278

PATIENT
  Age: 62 Year
  Sex: Female
  Weight: 74.8435 kg

DRUGS (4)
  1. PREVACID [Suspect]
     Indication: GASTRIC ULCER
     Dosage: 30 MG, 1 IN 1 D, PER ORAL
     Route: 048
  2. TOPROL-XL [Concomitant]
  3. SIMVASTATIN [Concomitant]
  4. ASPIRIN [Concomitant]

REACTIONS (1)
  - HERNIA REPAIR [None]
